FAERS Safety Report 5334250-7 (Version None)
Quarter: 2007Q2

REPORT INFORMATION
  Report Type: 
  Country: None (occurrence: None)
  Receive Date: 20070523
  Receipt Date: 20070523
  Transmission Date: 20071010
  Serious: Yes (Other)
  Sender: FDA-Public Use
  Company Number: None

PATIENT
  Sex: Female
  Weight: 11.5 kg

DRUGS (5)
  1. CEFTAZIDIME [Suspect]
     Indication: BACTERAEMIA
     Dosage: 500MG EVERY 8 HOURS IV BOLUS
     Route: 040
     Dates: start: 20070518, end: 20070519
  2. ACETAMINOPHEN [Concomitant]
  3. DIFLUCAN [Concomitant]
  4. SULFAMETHOXAZOLE W/TMP SUSP [Concomitant]
  5. IBUPROFEN [Concomitant]

REACTIONS (1)
  - URTICARIA [None]
